FAERS Safety Report 16809122 (Version 1)
Quarter: 2019Q4

REPORT INFORMATION
  Report Type: Spontaneous
  Country: US (occurrence: US)
  Receive Date: 20190914
  Receipt Date: 20190914
  Transmission Date: 20200122
  Serious: No
  Sender: FDA-Public Use
  Company Number: None

PATIENT
  Age: 60 Year
  Sex: Female
  Weight: 72 kg

DRUGS (2)
  1. NATURE THROID 120MG [Concomitant]
  2. NP THYROID [Suspect]
     Active Substance: LEVOTHYROXINE\LIOTHYRONINE
     Indication: HYPOTHYROIDISM
     Dosage: ?          QUANTITY:1 TABLET(S);?
     Route: 048
     Dates: start: 20190729, end: 20190901

REACTIONS (9)
  - Fatigue [None]
  - Product contamination physical [None]
  - Feeling abnormal [None]
  - Pain [None]
  - Product odour abnormal [None]
  - Inflammation [None]
  - Product physical issue [None]
  - Product taste abnormal [None]
  - Dry eye [None]

NARRATIVE: CASE EVENT DATE: 20190901
